FAERS Safety Report 4710328-3 (Version None)
Quarter: 2005Q3

REPORT INFORMATION
  Report Type: 
  Country: None (occurrence: None)
  Receive Date: 20050707
  Receipt Date: 20050623
  Transmission Date: 20060218
  Serious: Yes (Hospitalization)
  Sender: FDA-Public Use
  Company Number: WAES 0506USA03348

PATIENT
  Age: 60 Year
  Sex: Female

DRUGS (14)
  1. DECADRON [Suspect]
     Indication: MULTIPLE MYELOMA
     Dosage: 40 MG/DAILY, PO
     Route: 048
     Dates: start: 20050312, end: 20050315
  2. POWD IDARUBICIN HCL [Suspect]
     Indication: MULTIPLE MYELOMA
     Dosage: SEE IMAGE
     Route: 048
     Dates: start: 20050315, end: 20030315
  3. POWD IDARUBICIN HCL [Suspect]
     Indication: MULTIPLE MYELOMA
     Dosage: SEE IMAGE
     Route: 048
     Dates: start: 20050312, end: 20050314
  4. THALIDOMIDE [Suspect]
     Indication: MULTIPLE MYELOMA
     Dosage: 100 MG/DAILY
     Dates: start: 20050312
  5. CYCLOPHOSPHAMIDE [Suspect]
     Indication: MULTIPLE MYELOMA
     Dosage: SEE IMAGE
     Dates: start: 20050312, end: 20050312
  6. CYCLOPHOSPHAMIDE [Suspect]
     Indication: MULTIPLE MYELOMA
     Dosage: SEE IMAGE
     Dates: start: 20050313, end: 20050315
  7. ARANESP [Concomitant]
  8. COTRIM [Concomitant]
  9. PANTOPRAZOLE SODIUM [Concomitant]
  10. ZOFRAN [Concomitant]
  11. HEPARIN SODIUM [Concomitant]
  12. IBANDRONATE SODIUM [Concomitant]
  13. MESNA [Concomitant]
  14. PEGFILGRASTIM [Concomitant]

REACTIONS (9)
  - BRONCHOPNEUMONIA [None]
  - CYANOSIS [None]
  - DYSPNOEA [None]
  - IMMUNODEFICIENCY [None]
  - PANCYTOPENIA [None]
  - PLASMACYTOMA [None]
  - THORACIC VERTEBRAL FRACTURE [None]
  - TONGUE DRY [None]
  - X-RAY ABNORMAL [None]
